FAERS Safety Report 18027417 (Version 2)
Quarter: 2020Q3

REPORT INFORMATION
  Report Type: Spontaneous
  Country: FR (occurrence: FR)
  Receive Date: 20200715
  Receipt Date: 20200721
  Transmission Date: 20201103
  Serious: Yes (Other)
  Sender: FDA-Public Use
  Company Number: FR-BRISTOL-MYERS SQUIBB COMPANY-BMS-2020-056103

PATIENT
  Age: 56 Year
  Sex: Female
  Weight: 41 kg

DRUGS (11)
  1. ONDANSETRON [Concomitant]
     Active Substance: ONDANSETRON
     Indication: PRODUCT USED FOR UNKNOWN INDICATION
     Dosage: 16 MILLIGRAM, PER DAY
     Route: 048
     Dates: start: 20200624
  2. AMITRIPTYLINE [Concomitant]
     Active Substance: AMITRIPTYLINE
     Indication: NEURALGIA
     Dosage: 50 MILLIGRAM, QD
     Route: 048
     Dates: start: 20200623
  3. OPDIVO [Suspect]
     Active Substance: NIVOLUMAB
     Indication: SQUAMOUS CELL CARCINOMA
     Dosage: 240 MILLIGRAM, 2 WEEK
     Route: 042
     Dates: start: 202002, end: 20200612
  4. DIFFU K [Concomitant]
     Active Substance: POTASSIUM CHLORIDE
     Indication: PRODUCT USED FOR UNKNOWN INDICATION
     Dosage: 3600 MILLIGRAM, PER DAY
     Route: 048
     Dates: start: 20200625
  5. OXYCODONE [Concomitant]
     Active Substance: OXYCODONE
     Indication: PAIN
     Dosage: 5 MILLIGRAM, Q4H
     Route: 048
     Dates: start: 20200622, end: 20200623
  6. PARACETAMOL [Concomitant]
     Active Substance: ACETAMINOPHEN
     Indication: PAIN
     Dosage: 3 GRAM, PER DAY
     Route: 048
     Dates: start: 20200622
  7. METOCLOPRAMIDE. [Concomitant]
     Active Substance: METOCLOPRAMIDE
     Indication: PRODUCT USED FOR UNKNOWN INDICATION
     Dosage: 10 MILLIGRAM, Q8H
     Route: 042
     Dates: start: 20200623, end: 20200624
  8. FUNGIZONE [Concomitant]
     Active Substance: AMPHOTERICIN B
     Indication: PRODUCT USED FOR UNKNOWN INDICATION
     Dosage: 8 DOSAGE FORM, PER DAY
     Route: 048
     Dates: start: 20200625
  9. LEVOTHYROXINE SODIQUE [Concomitant]
     Active Substance: LEVOTHYROXINE SODIUM
     Indication: HYPOTHYROIDISM
     Dosage: 75 MICROGRAM, PER DAY
     Route: 048
  10. SALBUTAMOL [Concomitant]
     Active Substance: ALBUTEROL
     Indication: PRODUCT USED FOR UNKNOWN INDICATION
     Dosage: 10 MILLIGRAM, QD
     Route: 055
     Dates: start: 20200624, end: 20200624
  11. LOVENOX [Concomitant]
     Active Substance: ENOXAPARIN SODIUM
     Indication: PRODUCT USED FOR UNKNOWN INDICATION
     Dosage: 10000 INTERNATIONAL UNIT, PER DAY
     Route: 058
     Dates: start: 20200622

REACTIONS (2)
  - Neuropathy peripheral [Not Recovered/Not Resolved]
  - Renal tubular acidosis [Recovered/Resolved]

NARRATIVE: CASE EVENT DATE: 20200621
